FAERS Safety Report 17694169 (Version 4)
Quarter: 2020Q4

REPORT INFORMATION
  Report Type: Spontaneous
  Country: PR (occurrence: PR)
  Receive Date: 20200422
  Receipt Date: 20201123
  Transmission Date: 20210113
  Serious: No
  Sender: FDA-Public Use
  Company Number: PR-PFIZER INC-2020155513

PATIENT
  Age: 63 Year
  Sex: Female

DRUGS (2)
  1. XELJANZ XR [Suspect]
     Active Substance: TOFACITINIB CITRATE
     Dosage: 11 MG, DAILY
     Route: 048
     Dates: start: 2020
  2. XELJANZ XR [Suspect]
     Active Substance: TOFACITINIB CITRATE
     Indication: RHEUMATOID ARTHRITIS
     Dosage: 11 MG, DAILY
     Route: 048
     Dates: start: 20191220, end: 202004

REACTIONS (7)
  - Arthritis [Unknown]
  - White blood cell count decreased [Unknown]
  - Herpes zoster [Unknown]
  - Pain [Unknown]
  - Urinary tract infection [Unknown]
  - Haemoglobin decreased [Unknown]
  - Discomfort [Unknown]
